FAERS Safety Report 9305072 (Version 5)
Quarter: 2014Q2

REPORT INFORMATION
  Report Type: Report from Study
  Country: BR (occurrence: BR)
  Receive Date: 20130523
  Receipt Date: 20140521
  Transmission Date: 20141212
  Serious: Yes (Hospitalization, Other)
  Sender: FDA-Public Use
  Company Number: BR-ROCHE-1215737

PATIENT
  Sex: Female
  Weight: 60 kg

DRUGS (6)
  1. MABTHERA [Suspect]
     Indication: RHEUMATOID ARTHRITIS
     Dosage: RECENT INFUSION ON 28/NOV/2013
     Route: 042
     Dates: start: 20130410
  2. INFLUENZA VACCINE [Suspect]
     Indication: PRODUCT USED FOR UNKNOWN INDICATION
     Route: 065
  3. AZATHIOPRINE [Suspect]
     Indication: PRODUCT USED FOR UNKNOWN INDICATION
     Route: 065
  4. OMEPRAZOLE [Concomitant]
  5. PREDNISONE [Concomitant]
  6. REUQUINOL [Concomitant]
     Route: 065

REACTIONS (31)
  - Dengue fever [Recovered/Resolved]
  - Thrombocytopenia [Recovered/Resolved]
  - Drug hypersensitivity [Unknown]
  - Pneumonia [Unknown]
  - Nausea [Recovered/Resolved]
  - Vomiting [Recovered/Resolved]
  - Pain [Not Recovered/Not Resolved]
  - Gait disturbance [Unknown]
  - Hypoaesthesia [Unknown]
  - Hair texture abnormal [Unknown]
  - Pain [Not Recovered/Not Resolved]
  - Dizziness [Unknown]
  - Abdominal pain upper [Unknown]
  - Dry throat [Unknown]
  - Pyrexia [Unknown]
  - Chills [Unknown]
  - Skin plaque [Unknown]
  - Anaemia [Unknown]
  - Rash erythematous [Unknown]
  - Feeling cold [Unknown]
  - Trichorrhexis [Unknown]
  - Flushing [Unknown]
  - Alopecia [Recovering/Resolving]
  - Abdominal pain [Recovered/Resolved]
  - Arthralgia [Recovering/Resolving]
  - Skin lesion [Not Recovered/Not Resolved]
  - Tendonitis [Not Recovered/Not Resolved]
  - Diarrhoea [Recovered/Resolved]
  - Spinal pain [Not Recovered/Not Resolved]
  - Pain [Not Recovered/Not Resolved]
  - Spinal disorder [Not Recovered/Not Resolved]
